FAERS Safety Report 13139656 (Version 1)
Quarter: 2017Q1

REPORT INFORMATION
  Report Type: Spontaneous
  Country: FR (occurrence: FR)
  Receive Date: 20170123
  Receipt Date: 20170123
  Transmission Date: 20170428
  Serious: Yes (Hospitalization)
  Sender: FDA-Public Use
  Company Number: FR-TEVA-729740ROM

PATIENT
  Age: 45 Year
  Sex: Female

DRUGS (5)
  1. DIAZEPAM TEVA 10 MG [Suspect]
     Active Substance: DIAZEPAM
     Indication: INSOMNIA
     Dosage: 1 DOSAGE FORMS DAILY;
  2. PAROXETINE TEVA 20 MG [Suspect]
     Active Substance: PAROXETINE
     Dosage: .5 DOSAGE FORMS DAILY;
  3. DONORMYL [Concomitant]
     Active Substance: DOXYLAMINE SUCCINATE
  4. PAROXETINE TEVA 20 MG [Suspect]
     Active Substance: PAROXETINE
     Indication: SERUM SEROTONIN DECREASED
     Dosage: 1 DOSAGE FORMS DAILY;
  5. DIAZEPAM TEVA 10 MG [Suspect]
     Active Substance: DIAZEPAM
     Dosage: .5 DOSAGE FORMS DAILY;

REACTIONS (4)
  - Aphasia [Not Recovered/Not Resolved]
  - Insomnia [Not Recovered/Not Resolved]
  - Fibromyalgia [Not Recovered/Not Resolved]
  - Serum serotonin increased [Not Recovered/Not Resolved]

NARRATIVE: CASE EVENT DATE: 20161205
